FAERS Safety Report 7375859-9 (Version None)
Quarter: 2011Q1

REPORT INFORMATION
  Report Type: 
  Country: None (occurrence: None)
  Receive Date: 20110325
  Receipt Date: 20110321
  Transmission Date: 20110831
  Serious: Yes (Hospitalization)
  Sender: FDA-Public Use
  Company Number: A0919205A

PATIENT
  Age: 64 Year
  Sex: Male

DRUGS (8)
  1. METFORMIN HCL [Concomitant]
  2. LORATADINE [Concomitant]
  3. RANITIDINE [Concomitant]
  4. ASPIRIN [Concomitant]
  5. FLONASE [Concomitant]
  6. ADVAIR DISKUS 100/50 [Suspect]
     Indication: MULTIPLE ALLERGIES
     Dosage: 2PUFF TWICE PER DAY
     Route: 055
     Dates: end: 20110201
  7. LISINOPRIL [Concomitant]
  8. GLIPIZIDE [Concomitant]

REACTIONS (1)
  - CHEST PAIN [None]
